FAERS Safety Report 24608525 (Version 1)
Quarter: 2024Q4

REPORT INFORMATION
  Report Type: Spontaneous
  Country: US (occurrence: None)
  Receive Date: 20241111
  Receipt Date: 20241111
  Transmission Date: 20250114
  Serious: Yes (unspecified)
  Sender: Public
  Company Number: None

PATIENT
  Age: 71 Year
  Sex: Female
  Weight: 63 kg

DRUGS (11)
  1. HUGGIES LITTLE SWIMMERS [Suspect]
     Active Substance: AVOBENZONE\OCTINOXATE\OCTISALATE\OCTOCRYLENE\OXYBENZONE
     Indication: Personal hygiene
     Dosage: FREQUENCY : AS NEEDED?
     Route: 061
     Dates: start: 20241025, end: 20241110
  2. LINZESS [Suspect]
     Active Substance: LINACLOTIDE
     Indication: Mobility decreased
     Dosage: 1 CAPSULE EVERY DY ORAL
     Route: 048
     Dates: start: 20240501, end: 20240601
  3. LINZESS [Suspect]
     Active Substance: LINACLOTIDE
     Indication: Abdominal operation
  4. LINZESS [Suspect]
     Active Substance: LINACLOTIDE
     Indication: Surgery
  5. PEPSID AC [Concomitant]
  6. CHOLESTEROL REDUCER [Concomitant]
  7. ANTI ANXIETY MEDICATION [Concomitant]
  8. VITAMIN D [Concomitant]
     Active Substance: VITAMIN D NOS
  9. VITAMIN E [Concomitant]
     Active Substance: .ALPHA.-TOCOPHEROL
  10. IRON [Concomitant]
     Active Substance: IRON
  11. CALCIUM [Concomitant]
     Active Substance: CALCIUM

REACTIONS (8)
  - Product formulation issue [None]
  - Application site pain [None]
  - Genital burning sensation [None]
  - Application site inflammation [None]
  - Skin erosion [None]
  - Product complaint [None]
  - Diarrhoea [None]
  - Dehydration [None]

NARRATIVE: CASE EVENT DATE: 20241028
